FAERS Safety Report 8110394-1 (Version None)
Quarter: 2012Q1

REPORT INFORMATION
  Report Type: 
  Country: None (occurrence: None)
  Receive Date: 20120202
  Receipt Date: 20120123
  Transmission Date: 20120608
  Serious: Yes (Death, Hospitalization)
  Sender: FDA-Public Use
  Company Number: US-BAXTER-2012BH001635

PATIENT
  Sex: Male

DRUGS (1)
  1. DIANEAL [Suspect]
     Indication: PERITONEAL DIALYSIS
     Route: 033
     Dates: end: 20120121

REACTIONS (5)
  - MYOCARDIAL INFARCTION [None]
  - HEAD INJURY [None]
  - CEREBROVASCULAR ACCIDENT [None]
  - FALL [None]
  - CARDIAC ARREST [None]
